FAERS Safety Report 7251980-0 (Version None)
Quarter: 2011Q1

REPORT INFORMATION
  Report Type: 
  Country: None (occurrence: None)
  Receive Date: 20110128
  Receipt Date: 20100108
  Transmission Date: 20110831
  Serious: No
  Sender: FDA-Public Use
  Company Number: US-ABBOTT-10P-163-0618901-00

PATIENT
  Sex: Female
  Weight: 58.112 kg

DRUGS (5)
  1. PREDNISONE [Concomitant]
     Indication: RHEUMATOID ARTHRITIS
  2. ARAVA [Concomitant]
     Indication: RHEUMATOID ARTHRITIS
  3. VICODIN [Concomitant]
     Indication: PRODUCT USED FOR UNKNOWN INDICATION
  4. HUMIRA [Suspect]
     Indication: RHEUMATOID ARTHRITIS
     Dates: start: 20090701
  5. LEXAPRO [Concomitant]
     Indication: DEPRESSION

REACTIONS (1)
  - INJECTION SITE PAIN [None]
